FAERS Safety Report 8168503-4 (Version None)
Quarter: 2012Q1

REPORT INFORMATION
  Report Type: 
  Country: None (occurrence: None)
  Receive Date: 20120227
  Receipt Date: 20120227
  Transmission Date: 20120608
  Serious: No
  Sender: FDA-Public Use
  Company Number: None

PATIENT
  Age: 64 Year
  Sex: Male
  Weight: 79.378 kg

DRUGS (1)
  1. PROPECIA [Suspect]
     Indication: ALOPECIA
     Dosage: I TABLET PER DAY
     Route: 048
     Dates: start: 19980810, end: 20120220

REACTIONS (3)
  - ERECTILE DYSFUNCTION [None]
  - DRUG INEFFECTIVE [None]
  - LOSS OF LIBIDO [None]
